FAERS Safety Report 15505103 (Version 1)
Quarter: 2018Q4

REPORT INFORMATION
  Report Type: Spontaneous
  Country: US (occurrence: US)
  Receive Date: 20181010
  Receipt Date: 20181010
  Transmission Date: 20190205
  Serious: Yes (Death)
  Sender: FDA-Public Use
  Company Number: None

PATIENT
  Age: 62 Year
  Sex: Female
  Weight: 63.45 kg

DRUGS (21)
  1. GABAPENTIN 300 MG 1 CAPSULE 3 TIMES A DAY [Concomitant]
  2. IBUPROFEN 600 MG 3 TIMES A DAY AS NEEDED [Concomitant]
  3. MELOXICAM 15 MG DAILY [Concomitant]
  4. MORPHINE 15 MG TWICE A DAY AS NEEDED [Concomitant]
  5. PROAIR HFA 2 INHALATIONS 4 TIMES A DAY AS NEEDED [Concomitant]
  6. ZYRTEC 10 MG DAILY [Concomitant]
  7. FLONASE NASAL SPRAY, ONCE A DAY [Concomitant]
  8. MONTELUKAST [Suspect]
     Active Substance: MONTELUKAST SODIUM
     Indication: ASTHMA
     Route: 048
  9. ATORVASTATIN 10 MG DAILY [Concomitant]
  10. CYCLOBENZAPRINE 10 MG AT BEDTIME [Concomitant]
  11. MORPHINE ER 60 MG, EVERY 12 HOURS [Concomitant]
  12. IRON 325 MG, 1 TABLET DAILY [Concomitant]
  13. LISINOPRIL 20 MG DAILY [Concomitant]
  14. RANITIDINE 150 MG TWICE A DAY AS NEEDED [Concomitant]
  15. ESTRADIOL 10 MCG VAGINAL TABLET 3 TIMES A WEEK [Concomitant]
  16. POTASSIUM CHLORIDE ER 10 MEQ DAILY [Concomitant]
  17. LOSARTAN 50 MG TABLETS [Suspect]
     Active Substance: LOSARTAN
  18. CLONAZEPAM 1 MG AT BEDTIME [Concomitant]
  19. HYDROCHLOROTHIAZIDE 25 MG DAILY [Concomitant]
  20. LEVOTHYROXINE 75 MCG DAILY [Concomitant]
  21. SYMBICORT 1-2 PUFFS TWICE A DAY [Concomitant]

REACTIONS (2)
  - Wrong product administered [None]
  - Product dispensing error [None]

NARRATIVE: CASE EVENT DATE: 20180524
